FAERS Safety Report 7057748-2 (Version None)
Quarter: 2010Q4

REPORT INFORMATION
  Report Type: 
  Country: None (occurrence: None)
  Receive Date: 20101022
  Receipt Date: 20101011
  Transmission Date: 20110411
  Serious: Yes (Hospitalization, Other)
  Sender: FDA-Public Use
  Company Number: US-PFIZER INC-2010129545

PATIENT
  Sex: Male
  Weight: 72.562 kg

DRUGS (10)
  1. LYRICA [Suspect]
     Indication: FIBROMYALGIA
     Dosage: 100 MG, 2X/DAY
     Route: 048
     Dates: start: 20091101
  2. LEXAPRO [Concomitant]
     Dosage: 10 MG, 2X/DAY
  3. ALPRAZOLAM [Concomitant]
     Dosage: 0.5 MG, 2X/DAY
  4. MORPHINE [Concomitant]
     Dosage: 15 MG, DAILY
  5. ADVAIR DISKUS 100/50 [Concomitant]
     Indication: CHRONIC OBSTRUCTIVE PULMONARY DISEASE
     Dosage: 50 UG, 2X/DAY
  6. SPIRIVA [Concomitant]
     Indication: CHRONIC OBSTRUCTIVE PULMONARY DISEASE
     Dosage: 18 UG, 1X/DAY
  7. PROAIR HFA [Concomitant]
     Indication: CHRONIC OBSTRUCTIVE PULMONARY DISEASE
     Dosage: 90 UG, AS NEEDED 2X/WEEK
  8. ZOFRAN [Suspect]
     Dosage: 4 MG, 3X/DAY
  9. PRILOSEC [Suspect]
     Dosage: 20 MG, 1X/DAY
  10. BACTERIA NOS [Suspect]
     Dosage: 35 BILLION CFU 2X/DAILY

REACTIONS (6)
  - CHEST PAIN [None]
  - DYSPNOEA [None]
  - HEADACHE [None]
  - INFLUENZA LIKE ILLNESS [None]
  - MALAISE [None]
  - NAUSEA [None]
